FAERS Safety Report 21119165 (Version 1)
Quarter: 2022Q3

REPORT INFORMATION
  Report Type: Spontaneous
  Country: None (occurrence: US)
  Receive Date: 20220722
  Receipt Date: 20220722
  Transmission Date: 20221027
  Serious: No
  Sender: FDA-Public Use
  Company Number: US-Mission Pharmacal Company-2131116

PATIENT
  Age: 64 Year
  Sex: Male

DRUGS (4)
  1. UROCIT-K [Suspect]
     Active Substance: POTASSIUM CITRATE
     Indication: Nephrolithiasis
     Route: 048
  2. ALLOPURINOL [Concomitant]
     Active Substance: ALLOPURINOL
  3. PRAVASTATIN [Concomitant]
     Active Substance: PRAVASTATIN
  4. METOPROLOL [Concomitant]
     Active Substance: METOPROLOL

REACTIONS (2)
  - Product residue present [Recovered/Resolved]
  - Product dose omission issue [Unknown]
